FAERS Safety Report 8824539 (Version 1)
Quarter: 2012Q4

REPORT INFORMATION
  Report Type: 
  Country: CN (occurrence: CN)
  Receive Date: 20121004
  Receipt Date: 20121004
  Transmission Date: 20130627
  Serious: Yes (Other)
  Sender: FDA-Public Use
  Company Number: PHHY2012CN084998

PATIENT

DRUGS (3)
  1. CICLOSPORIN [Suspect]
     Indication: RENAL TRANSPLANT
     Dosage: 4-6 mg/kg/day, in two divided doses
     Route: 048
  2. SIROLIMUS [Suspect]
     Indication: RENAL TRANSPLANT
     Dosage: 6 mg, per day-Initial dose
  3. SIROLIMUS [Suspect]
     Dosage: 2 mg, per day-Maintainence dose

REACTIONS (2)
  - Complications of transplanted kidney [Recovering/Resolving]
  - Anuria [Recovering/Resolving]
